FAERS Safety Report 4867844-3 (Version None)
Quarter: 2005Q4

REPORT INFORMATION
  Report Type: 
  Country: None (occurrence: None)
  Receive Date: 20051228
  Receipt Date: 20051201
  Transmission Date: 20060501
  Serious: Yes (Hospitalization)
  Sender: FDA-Public Use
  Company Number: US-MERCK-0512USA00110

PATIENT
  Age: 64 Year
  Sex: Female
  Weight: 43 kg

DRUGS (3)
  1. ZETIA [Suspect]
     Indication: TYPE IIA HYPERLIPIDAEMIA
     Route: 048
     Dates: start: 20030521, end: 20050701
  2. LIPITOR [Concomitant]
     Route: 065
  3. NIASPAN [Concomitant]
     Route: 065

REACTIONS (3)
  - LYMPHADENOPATHY [None]
  - PANCREATIC CYST [None]
  - PANCREATIC MASS [None]
